FAERS Safety Report 19793636 (Version 3)
Quarter: 2021Q4

REPORT INFORMATION
  Report Type: Spontaneous
  Country: JP (occurrence: JP)
  Receive Date: 20210906
  Receipt Date: 20211213
  Transmission Date: 20220303
  Serious: No
  Sender: FDA-Public Use
  Company Number: JP-CHUGAI-2021013928AA

PATIENT
  Age: 76 Year
  Sex: Female
  Weight: 37 kg

DRUGS (6)
  1. ACTEMRA [Suspect]
     Active Substance: TOCILIZUMAB
     Indication: Rheumatoid arthritis
     Route: 058
     Dates: start: 20210622, end: 20210706
  2. ETODOLAC [Suspect]
     Active Substance: ETODOLAC
     Indication: Product used for unknown indication
     Route: 048
     Dates: start: 20210616, end: 20210831
  3. REBAMIPIDE [Concomitant]
     Active Substance: REBAMIPIDE
     Dates: start: 20210616, end: 20210831
  4. METHYLCOBALAMIN [Concomitant]
     Active Substance: METHYLCOBALAMIN
  5. TOCOPHERYL NICOTINATE, D-.ALPHA. [Concomitant]
     Active Substance: TOCOPHERYL NICOTINATE, D-.ALPHA.
  6. SHAKUYAKUKANZOTO [Concomitant]
     Active Substance: HERBALS

REACTIONS (1)
  - Eczema [Recovered/Resolved]

NARRATIVE: CASE EVENT DATE: 20210706
